FAERS Safety Report 7957661-X (Version None)
Quarter: 2011Q4

REPORT INFORMATION
  Report Type: 
  Country: None (occurrence: None)
  Receive Date: 20111205
  Receipt Date: 20111128
  Transmission Date: 20120403
  Serious: Yes (Other)
  Sender: FDA-Public Use
  Company Number: PHHY2011CA104561

PATIENT
  Sex: Female

DRUGS (3)
  1. CALCIUM [Concomitant]
     Dosage: 500 MG, BID
     Dates: start: 20050101
  2. VITAMIN D [Concomitant]
     Dosage: 400 U, BID
     Dates: start: 20050101
  3. ZOLEDRONOC ACID [Suspect]
     Indication: OSTEOPOROSIS
     Dosage: 5 MG, UNK
     Route: 042
     Dates: start: 20100130

REACTIONS (2)
  - DYSPEPSIA [None]
  - GLOMERULAR FILTRATION RATE DECREASED [None]
